FAERS Safety Report 16270134 (Version 3)
Quarter: 2019Q2

REPORT INFORMATION
  Report Type: Report from Study
  Country: ES (occurrence: ES)
  Receive Date: 20190503
  Receipt Date: 20190516
  Transmission Date: 20190711
  Serious: No
  Sender: FDA-Public Use
  Company Number: ES-JNJFOC-20190434877

PATIENT
  Age: 86 Year
  Sex: Female

DRUGS (1)
  1. IBRUTINIB [Suspect]
     Active Substance: IBRUTINIB
     Indication: CHRONIC LYMPHOCYTIC LEUKAEMIA
     Route: 065
     Dates: start: 20180207, end: 20190130

REACTIONS (1)
  - Erythema induratum [Unknown]

NARRATIVE: CASE EVENT DATE: 20190130
